FAERS Safety Report 8965905 (Version 1)
Quarter: 2012Q4

REPORT INFORMATION
  Report Type: Report from Study
  Country: FR (occurrence: FR)
  Receive Date: 20121217
  Receipt Date: 20121217
  Transmission Date: 20130627
  Serious: Yes (Hospitalization)
  Sender: FDA-Public Use
  Company Number: PHHY2012FR095992

PATIENT
  Age: 67 Year
  Sex: Female
  Weight: 69 kg

DRUGS (9)
  1. ACLASTA/ZOLEDRONATE [Suspect]
     Indication: OSTEOPOROSIS
     Dosage: UNK UKN, UNK
     Route: 042
     Dates: start: 20120327
  2. LEVOTHYROX [Concomitant]
     Indication: THYROID DISORDER
     Dosage: 75 ug, QD
     Route: 048
     Dates: start: 2004
  3. EFFEXOR - SLOW RELEASE [Concomitant]
     Indication: DEPRESSION
     Dosage: UNK UKN, BID
     Route: 048
     Dates: start: 2005
  4. DAFLON [Concomitant]
     Indication: VENOUS INSUFFICIENCY
     Dosage: 500 mg, BID
     Route: 048
     Dates: start: 2012
  5. MACROGOL [Concomitant]
     Dosage: UNK UKN, UNK
  6. VACCINIUM MACROCARPON [Concomitant]
     Dosage: UNK UKN, UNK
  7. MAGNEVIE B6 [Concomitant]
     Dosage: UNK UKN, UNK
  8. PROBIOTICS [Concomitant]
     Dosage: UNK UKN, UNK
  9. ATARAX [Concomitant]
     Dosage: UNK UKN, UNK

REACTIONS (1)
  - Bladder prolapse [Recovering/Resolving]
